FAERS Safety Report 8975222 (Version 2)
Quarter: 2013Q2

REPORT INFORMATION
  Report Type: Spontaneous
  Country: US (occurrence: US)
  Receive Date: 20121219
  Receipt Date: 20130606
  Transmission Date: 20140414
  Serious: No
  Sender: FDA-Public Use
  Company Number: US-AMGEN-USASP2012075746

PATIENT
  Age: 67 Year
  Sex: Male

DRUGS (2)
  1. XGEVA [Suspect]
     Indication: PRODUCT USED FOR UNKNOWN INDICATION
     Dosage: 120 MG, QMO
     Route: 030
     Dates: start: 201112
  2. ASPIRIN [Concomitant]
     Dosage: 325 MG, UNK

REACTIONS (4)
  - Rash [Unknown]
  - Contusion [Unknown]
  - Incorrect route of drug administration [Unknown]
  - Chronic pigmented purpura [Unknown]
